FAERS Safety Report 7476449-X (Version None)
Quarter: 2011Q2

REPORT INFORMATION
  Report Type: 
  Country: None (occurrence: None)
  Receive Date: 20110512
  Receipt Date: 20110502
  Transmission Date: 20111010
  Serious: Yes (Hospitalization, Other)
  Sender: FDA-Public Use
  Company Number: US-PFIZER INC-2011065407

PATIENT
  Sex: Female
  Weight: 66 kg

DRUGS (8)
  1. SUTENT [Suspect]
     Indication: RENAL CELL CARCINOMA
     Dosage: 50 MG, DAILY
     Route: 048
     Dates: start: 20110210, end: 20110315
  2. VITAMIN D [Concomitant]
     Dosage: 1000 UNIT, 2X/DAY
     Route: 048
  3. CALCIUM CARBONATE [Concomitant]
     Dosage: 500 MG, 1X/DAY
     Route: 048
  4. AMBIEN [Concomitant]
     Indication: SLEEP DISORDER
     Dosage: 10 MG, 1 TABLET AT BEDTIME AS NEEDED
     Route: 048
     Dates: start: 20110207
  5. LEXAPRO [Concomitant]
     Dosage: 20 MG, 1X/DAY
     Route: 048
     Dates: start: 20101223
  6. ZOFRAN [Concomitant]
     Indication: NAUSEA
     Dosage: 8 MG,  (1 TAB, EVERY 8 HOURS AS NEEDED)
     Route: 048
     Dates: start: 20110314
  7. WELLBUTRIN SR [Concomitant]
     Dosage: 100 MG, 1X/DAY, 12 HOUR RELEASE TABLET
     Route: 048
     Dates: start: 20100512
  8. RESTORIL [Concomitant]
     Indication: SLEEP DISORDER
     Dosage: 15 MG, AT BEDTIME AS NEEDED
     Route: 048

REACTIONS (27)
  - PYREXIA [None]
  - JAUNDICE [None]
  - DYSPHAGIA [None]
  - PLEURAL EFFUSION [None]
  - DECREASED APPETITE [None]
  - NAUSEA [None]
  - LIPASE INCREASED [None]
  - PERICARDIAL EFFUSION [None]
  - ASTHENIA [None]
  - PAIN [None]
  - LEUKOPENIA [None]
  - DYSPEPSIA [None]
  - BLOOD TEST ABNORMAL [None]
  - CONSTIPATION [None]
  - CHILLS [None]
  - HEADACHE [None]
  - HYPOALBUMINAEMIA [None]
  - ABDOMINAL PAIN [None]
  - PANCYTOPENIA [None]
  - OROPHARYNGEAL PAIN [None]
  - HYPONATRAEMIA [None]
  - ASCITES [None]
  - PNEUMONIA [None]
  - VOMITING [None]
  - HYPERHIDROSIS [None]
  - THROMBOCYTOPENIA [None]
  - DIARRHOEA [None]
